FAERS Safety Report 8934016 (Version 1)
Quarter: 2012Q4

REPORT INFORMATION
  Report Type: 
  Country: US (occurrence: US)
  Receive Date: 20121129
  Receipt Date: 20121129
  Transmission Date: 20130627
  Serious: No
  Sender: FDA-Public Use
  Company Number: US-PFIZER INC-2012296240

PATIENT
  Sex: Male

DRUGS (1)
  1. LIPITOR [Suspect]
     Dosage: UNK
     Dates: end: 20121126

REACTIONS (4)
  - Blood glucose abnormal [Unknown]
  - Disturbance in attention [Unknown]
  - Nervousness [Unknown]
  - Malaise [Unknown]
